FAERS Safety Report 9203638 (Version 1)
Quarter: 2013Q2

REPORT INFORMATION
  Report Type: Spontaneous
  Country: US (occurrence: US)
  Receive Date: 20130402
  Receipt Date: 20130402
  Transmission Date: 20140414
  Serious: Yes (Life-Threatening, Other)
  Sender: FDA-Public Use
  Company Number: PHEH2013US007335

PATIENT
  Sex: Female

DRUGS (1)
  1. CLOZARIL [Suspect]

REACTIONS (13)
  - Apparent life threatening event [Unknown]
  - Fall [Unknown]
  - Face injury [Unknown]
  - Eye movement disorder [Unknown]
  - Drooling [Unknown]
  - Increased appetite [Unknown]
  - Vertigo [Unknown]
  - Enuresis [Unknown]
  - Heart rate increased [Unknown]
  - Dry mouth [Unknown]
  - Dizziness [Unknown]
  - Dyskinesia [Unknown]
  - Weight increased [Unknown]
